FAERS Safety Report 4823844-0 (Version None)
Quarter: 2005Q4

REPORT INFORMATION
  Report Type: 
  Country: None (occurrence: None)
  Receive Date: 20051107
  Receipt Date: 20051027
  Transmission Date: 20060501
  Serious: Yes (Other)
  Sender: FDA-Public Use
  Company Number: CHPA2005US05317

PATIENT
  Age: 48 Year
  Sex: Male
  Weight: 90.7 kg

DRUGS (1)
  1. NICOTINE [Suspect]
     Indication: SMOKING CESSATION THERAPY
     Dosage: 14 MG, QD
     Dates: start: 20050401, end: 20050101

REACTIONS (4)
  - APPLICATION SITE DERMATITIS [None]
  - INCORRECT DOSE ADMINISTERED [None]
  - PRURITUS [None]
  - RASH GENERALISED [None]
